FAERS Safety Report 21880834 (Version 2)
Quarter: 2023Q1

REPORT INFORMATION
  Report Type: Spontaneous
  Country: FR (occurrence: FR)
  Receive Date: 20230118
  Receipt Date: 20230201
  Transmission Date: 20230417
  Serious: Yes (Hospitalization, Other)
  Sender: FDA-Public Use
  Company Number: FR-BAUSCH-BL-2023-000917

PATIENT
  Age: 75 Year
  Sex: Female

DRUGS (2)
  1. ZYCLARA [Suspect]
     Active Substance: IMIQUIMOD
     Indication: Actinic keratosis
     Route: 065
  2. ZYCLARA [Suspect]
     Active Substance: IMIQUIMOD
     Route: 065
     Dates: start: 20221110, end: 20230104

REACTIONS (5)
  - Toxic skin eruption [Recovering/Resolving]
  - Haematochezia [Recovering/Resolving]
  - Hyperkeratosis [Recovering/Resolving]
  - Dermatitis bullous [Recovering/Resolving]
  - Oesophagitis [Recovering/Resolving]
